FAERS Safety Report 7020934-1 (Version None)
Quarter: 2010Q3

REPORT INFORMATION
  Report Type: 
  Country: None (occurrence: None)
  Receive Date: 20100929
  Receipt Date: 20100923
  Transmission Date: 20110219
  Serious: Yes (Other)
  Sender: FDA-Public Use
  Company Number: PT-BRISTOL-MYERS SQUIBB COMPANY-15306418

PATIENT
  Age: 46 Year
  Sex: Male

DRUGS (6)
  1. EFAVIRENZ TABS [Suspect]
     Indication: HIV INFECTION
     Dates: start: 20100414, end: 20100525
  2. TENOFOVIR DF + EMTRICITABINE [Suspect]
     Indication: HIV INFECTION
     Dosage: 1 DF:200+245MG
     Route: 048
     Dates: start: 20100414, end: 20100525
  3. DAPSONE [Suspect]
     Dates: start: 20100512
  4. LEUCOVORIN CALCIUM [Suspect]
     Dates: start: 20100414
  5. SULFAMETHOXAZOLE [Suspect]
     Dates: start: 20100414, end: 20100512
  6. TRIMETHOPRIM [Suspect]
     Dates: start: 20100414, end: 20100512

REACTIONS (1)
  - TOXIC SKIN ERUPTION [None]
